FAERS Safety Report 7503820-X (Version None)
Quarter: 2011Q2

REPORT INFORMATION
  Report Type: 
  Country: None (occurrence: None)
  Receive Date: 20110524
  Receipt Date: 20110524
  Transmission Date: 20111010
  Serious: Yes (Other)
  Sender: FDA-Public Use
  Company Number: None

PATIENT
  Age: 64 Year
  Sex: Male
  Weight: 102.0593 kg

DRUGS (3)
  1. PRINIVIL [Suspect]
  2. LISINOPRIL [Suspect]
     Indication: HYPERTENSION
     Dosage: 20MG ONCE DAILY
     Dates: start: 20110201, end: 20110412
  3. ZESTRIL [Suspect]

REACTIONS (1)
  - COUGH [None]
